FAERS Safety Report 10193432 (Version 1)
Quarter: 2014Q2

REPORT INFORMATION
  Report Type: Spontaneous
  Country: US (occurrence: US)
  Receive Date: 20140524
  Receipt Date: 20140524
  Transmission Date: 20141212
  Serious: No
  Sender: FDA-Public Use
  Company Number: US-SA-2014SA003083

PATIENT
  Sex: Female

DRUGS (3)
  1. SOLOSTAR [Suspect]
     Indication: TYPE 2 DIABETES MELLITUS
     Dosage: TAKEN FROM: FEW MONTHS
  2. LANTUS SOLOSTAR [Suspect]
     Indication: TYPE 2 DIABETES MELLITUS
     Dosage: TAKEN FROM: FEW MONTHS DOSE:24 UNIT(S)
     Route: 051
  3. NOVOLOG [Suspect]
     Route: 065

REACTIONS (4)
  - Dyspnoea [Unknown]
  - Injection site discolouration [Unknown]
  - Injection site pain [Unknown]
  - Underdose [Unknown]
